FAERS Safety Report 8798135 (Version 2)
Quarter: 2012Q4

REPORT INFORMATION
  Report Type: 
  Country: AU (occurrence: AU)
  Receive Date: 20120920
  Receipt Date: 20121019
  Transmission Date: 20130627
  Serious: Yes (Death)
  Sender: FDA-Public Use
  Company Number: AU-B.I. PHARMACEUTICALS,INC./RIDGEFIELD-2012-AU-01631AU

PATIENT
  Sex: Male

DRUGS (14)
  1. PRADAXA [Suspect]
     Indication: CEREBROVASCULAR ACCIDENT PROPHYLAXIS
     Dosage: 220 mg
     Dates: start: 20110719, end: 20120809
  2. PRADAXA [Suspect]
     Indication: ATRIAL FIBRILLATION
  3. DIABEX [Concomitant]
  4. DIAMICRON [Concomitant]
  5. LASIX [Concomitant]
  6. LIPITOR [Concomitant]
  7. METOPROLOL [Concomitant]
  8. MODURETIC [Concomitant]
  9. OLMETEC [Concomitant]
  10. PANADOL OSTEO [Concomitant]
  11. VENTOLIN [Concomitant]
  12. XALATAN [Concomitant]
  13. OTOCOMB OTIC [Concomitant]
  14. NITROLINGUAL SPRAY [Concomitant]

REACTIONS (3)
  - Oligodendroglioma [Fatal]
  - Confusional state [Unknown]
  - Mobility decreased [Unknown]
